FAERS Safety Report 7801445-X (Version None)
Quarter: 2011Q4

REPORT INFORMATION
  Report Type: 
  Country: None (occurrence: None)
  Receive Date: 20111006
  Receipt Date: 20111006
  Transmission Date: 20120403
  Serious: Yes (Hospitalization)
  Sender: FDA-Public Use
  Company Number: None

PATIENT
  Age: 67 Year
  Sex: Female
  Weight: 85.2 kg

DRUGS (2)
  1. ASPIRIN [Suspect]
     Indication: CORONARY ARTERY DISEASE
     Dosage: PO CHRONIC
     Route: 048
  2. EFFIENT [Suspect]
     Indication: CORONARY ARTERY DISEASE
     Dosage: PO CHRONIC
     Route: 048

REACTIONS (3)
  - HAEMORRHAGIC ANAEMIA [None]
  - UPPER GASTROINTESTINAL HAEMORRHAGE [None]
  - GASTRIC ULCER [None]
